FAERS Safety Report 12936208 (Version 1)
Quarter: 2016Q4

REPORT INFORMATION
  Report Type: Report from Study
  Country: BR (occurrence: BR)
  Receive Date: 20161114
  Receipt Date: 20161114
  Transmission Date: 20170207
  Serious: Yes (Other)
  Sender: FDA-Public Use
  Company Number: PHHY2016BR154794

PATIENT
  Sex: Female
  Weight: 59 kg

DRUGS (2)
  1. DIOVAN [Suspect]
     Active Substance: VALSARTAN
     Indication: HYPERTENSION
     Dosage: 2 DF (80 MG), QD
     Route: 048
  2. DIOVAN [Suspect]
     Active Substance: VALSARTAN
     Indication: CARDIAC DISORDER
     Dosage: 1 DF (160 MG), QD
     Route: 048

REACTIONS (4)
  - Fatigue [Recovered/Resolved]
  - Vascular stent restenosis [Unknown]
  - Chest pain [Unknown]
  - Limb discomfort [Recovering/Resolving]
